FAERS Safety Report 17993754 (Version 1)
Quarter: 2020Q3

REPORT INFORMATION
  Report Type: Spontaneous
  Country: US (occurrence: US)
  Receive Date: 20200707
  Receipt Date: 20200707
  Transmission Date: 20201103
  Serious: No
  Sender: FDA-Public Use
  Company Number: None

PATIENT
  Age: 64 Year
  Sex: Female

DRUGS (8)
  1. GABAPENTIN. [Concomitant]
     Active Substance: GABAPENTIN
  2. FENOFIBRATE. [Concomitant]
     Active Substance: FENOFIBRATE
  3. DULOXETINE. [Concomitant]
     Active Substance: DULOXETINE
  4. NP THYROID [Suspect]
     Active Substance: LEVOTHYROXINE\LIOTHYRONINE
     Indication: HYPOTHYROIDISM
     Route: 048
  5. DIAZEPAM. [Concomitant]
     Active Substance: DIAZEPAM
  6. METFORMIN [Concomitant]
     Active Substance: METFORMIN HYDROCHLORIDE
  7. OMEPRAZOLE. [Concomitant]
     Active Substance: OMEPRAZOLE
  8. TOPIRAMATE. [Concomitant]
     Active Substance: TOPIRAMATE

REACTIONS (5)
  - Hypertension [None]
  - Recalled product administered [None]
  - Muscular weakness [None]
  - Heart rate increased [None]
  - Feeling hot [None]

NARRATIVE: CASE EVENT DATE: 20200609
